FAERS Safety Report 8049951-X (Version None)
Quarter: 2012Q1

REPORT INFORMATION
  Report Type: 
  Country: None (occurrence: None)
  Receive Date: 20120117
  Receipt Date: 20120106
  Transmission Date: 20120608
  Serious: Yes (Other)
  Sender: FDA-Public Use
  Company Number: DE-BAXTER-2011BH035051

PATIENT
  Age: 67 Year
  Sex: Male
  Weight: 78 kg

DRUGS (19)
  1. GAMMAGARD LIQUID [Suspect]
     Route: 042
     Dates: start: 20110819, end: 20110819
  2. GAMMAGARD LIQUID [Suspect]
     Route: 042
     Dates: start: 20110705, end: 20110705
  3. RIBOMUSTIN [Concomitant]
     Indication: CHRONIC LYMPHOCYTIC LEUKAEMIA
     Route: 042
     Dates: start: 20110510, end: 20110511
  4. GAMMAGARD LIQUID [Suspect]
     Route: 042
     Dates: start: 20110530, end: 20110530
  5. GAMMAGARD LIQUID [Suspect]
     Route: 042
     Dates: start: 20110722, end: 20110722
  6. TAZOBACTAM [Concomitant]
     Indication: INFLAMMATION
     Route: 065
     Dates: start: 20110601
  7. GAMMAGARD LIQUID [Suspect]
     Indication: SELECTIVE IGG SUBCLASS DEFICIENCY
     Route: 042
     Dates: start: 20110901, end: 20110901
  8. GAMMAGARD LIQUID [Suspect]
     Indication: CHRONIC OBSTRUCTIVE PULMONARY DISEASE
     Route: 042
     Dates: start: 20110901, end: 20110901
  9. GAMMAGARD LIQUID [Suspect]
     Route: 042
     Dates: start: 20110530, end: 20110530
  10. GAMMAGARD LIQUID [Suspect]
     Route: 042
     Dates: start: 20110624, end: 20110624
  11. GAMMAGARD LIQUID [Suspect]
     Route: 042
     Dates: start: 20110929, end: 20110929
  12. GAMMAGARD LIQUID [Suspect]
     Route: 042
     Dates: start: 20110624, end: 20110624
  13. GAMMAGARD LIQUID [Suspect]
     Route: 042
     Dates: start: 20110805, end: 20110805
  14. OXYGEN [Concomitant]
     Indication: BRONCHITIS
     Route: 055
     Dates: start: 20110601
  15. GAMMAGARD LIQUID [Suspect]
     Route: 042
     Dates: start: 20110819, end: 20110819
  16. GAMMAGARD LIQUID [Suspect]
     Route: 042
     Dates: start: 20110705, end: 20110705
  17. GAMMAGARD LIQUID [Suspect]
     Route: 042
     Dates: start: 20110805, end: 20110805
  18. GAMMAGARD LIQUID [Suspect]
     Route: 042
     Dates: start: 20110929, end: 20110929
  19. GAMMAGARD LIQUID [Suspect]
     Route: 042
     Dates: start: 20110722, end: 20110722

REACTIONS (4)
  - HEPATITIS A ANTIBODY POSITIVE [None]
  - EPSTEIN-BARR VIRUS INFECTION [None]
  - HEPATITIS B [None]
  - HERPES ZOSTER [None]
